FAERS Safety Report 18265446 (Version 1)
Quarter: 2020Q3

REPORT INFORMATION
  Report Type: Other
  Country: US (occurrence: US)
  Receive Date: 20200914
  Receipt Date: 20200914
  Transmission Date: 20201103
  Serious: No
  Sender: FDA-Public Use
  Company Number: US-LEADIANT BIOSCIENCES INC-2020STPI000248

PATIENT
  Sex: Male

DRUGS (6)
  1. NORCO [Concomitant]
     Active Substance: ACETAMINOPHEN\HYDROCODONE BITARTRATE
  2. MARQIBO [Concomitant]
     Active Substance: VINCRISTINE SULFATE
  3. GLEOSTINE [Concomitant]
     Active Substance: LOMUSTINE
  4. KEPPRA [Concomitant]
     Active Substance: LEVETIRACETAM
  5. MATULANE [Suspect]
     Active Substance: PROCARBAZINE HYDROCHLORIDE
     Indication: BRAIN NEOPLASM MALIGNANT
     Dosage: 100 MG QD
     Route: 048
     Dates: start: 20191223
  6. DOCUSATE [Concomitant]
     Active Substance: DOCUSATE

REACTIONS (1)
  - Paraesthesia [Unknown]
